FAERS Safety Report 19733262 (Version 1)
Quarter: 2021Q3

REPORT INFORMATION
  Report Type: Spontaneous
  Country: US (occurrence: US)
  Receive Date: 20210823
  Receipt Date: 20210823
  Transmission Date: 20211014
  Serious: Yes (Other)
  Sender: FDA-Public Use
  Company Number: US-CIPLA LTD.-2021US05751

PATIENT

DRUGS (12)
  1. CYCLOPHOSPHAMIDE. [Suspect]
     Active Substance: CYCLOPHOSPHAMIDE
     Indication: DESMOPLASTIC SMALL ROUND CELL TUMOUR
     Dosage: UNK
  2. ETOPOSIDE. [Suspect]
     Active Substance: ETOPOSIDE
     Dosage: UNK, REDUCED DOSE
  3. VINCRISTINE [Suspect]
     Active Substance: VINCRISTINE
     Indication: DESMOPLASTIC SMALL ROUND CELL TUMOUR
     Dosage: UNK
  4. VINCRISTINE [Suspect]
     Active Substance: VINCRISTINE
     Dosage: UNK, REDUCED DOSE
  5. IFOSFAMIDE. [Suspect]
     Active Substance: IFOSFAMIDE
     Indication: DESMOPLASTIC SMALL ROUND CELL TUMOUR
     Dosage: UNK
  6. DOXORUBICIN [Suspect]
     Active Substance: DOXORUBICIN
     Dosage: UNK, REDUCED DOSE
  7. IRINOTECAN [Suspect]
     Active Substance: IRINOTECAN
     Indication: DESMOPLASTIC SMALL ROUND CELL TUMOUR
     Dosage: UNK
  8. CYCLOPHOSPHAMIDE. [Suspect]
     Active Substance: CYCLOPHOSPHAMIDE
     Dosage: UNK, REDUCED DOSE
  9. IFOSFAMIDE. [Suspect]
     Active Substance: IFOSFAMIDE
     Dosage: UNK, REDUCED DOSE
  10. ETOPOSIDE. [Suspect]
     Active Substance: ETOPOSIDE
     Indication: DESMOPLASTIC SMALL ROUND CELL TUMOUR
     Dosage: UNK
  11. DOXORUBICIN [Suspect]
     Active Substance: DOXORUBICIN
     Indication: DESMOPLASTIC SMALL ROUND CELL TUMOUR
     Dosage: UNK
  12. TEMOZOLOMIDE. [Suspect]
     Active Substance: TEMOZOLOMIDE
     Indication: DESMOPLASTIC SMALL ROUND CELL TUMOUR
     Dosage: UNK

REACTIONS (2)
  - Clostridium difficile infection [Unknown]
  - Bacteraemia [Unknown]
